FAERS Safety Report 19459404 (Version 1)
Quarter: 2021Q2

REPORT INFORMATION
  Report Type: Spontaneous
  Country: HR (occurrence: HR)
  Receive Date: 20210624
  Receipt Date: 20210624
  Transmission Date: 20210717
  Serious: Yes (Hospitalization)
  Sender: FDA-Public Use
  Company Number: HR-FRESENIUS KABI-FK202106431

PATIENT
  Age: 66 Year
  Sex: Male

DRUGS (3)
  1. FOLINIC ACID [Concomitant]
     Active Substance: LEUCOVORIN
     Indication: COLON CANCER
     Dosage: EVERY 2 WEEKS FOR 6 MONTHS
     Route: 065
  2. OXALIPLATIN (MANUFACTURER UNKNOWN) [Suspect]
     Active Substance: OXALIPLATIN
     Indication: COLON CANCER
     Dosage: EVERY 2 WEEKS FOR 6 MONTHS
     Route: 065
  3. FLUOROURACIL. [Concomitant]
     Active Substance: FLUOROURACIL
     Indication: COLON CANCER
     Dosage: EVERY 2 WEEKS FOR 6 MONTHS
     Route: 065

REACTIONS (4)
  - Pulmonary fibrosis [Unknown]
  - Interstitial lung disease [Unknown]
  - Pyrexia [Unknown]
  - Neuropathy peripheral [Unknown]
